FAERS Safety Report 5834949-X (Version None)
Quarter: 2008Q3

REPORT INFORMATION
  Report Type: 
  Country: None (occurrence: None)
  Receive Date: 20080804
  Receipt Date: 20060110
  Transmission Date: 20090109
  Serious: Yes (Other)
  Sender: FDA-Public Use
  Company Number: 2003-05-4976

PATIENT
  Age: 31 Year
  Sex: Female

DRUGS (3)
  1. PEG-INTRON [Suspect]
     Indication: MALIGNANT MELANOMA
     Dosage: 6 MCG/KG; QW;, 3 MCG/KG; QW;
     Dates: start: 20030131, end: 20030228
  2. PEG-INTRON [Suspect]
     Indication: MALIGNANT MELANOMA
     Dosage: 6 MCG/KG; QW;, 3 MCG/KG; QW;
     Dates: start: 20030131, end: 20030419
  3. PEG-INTRON [Suspect]
     Indication: MALIGNANT MELANOMA
     Dosage: 6 MCG/KG; QW;, 3 MCG/KG; QW;
     Dates: start: 20030321, end: 20030419

REACTIONS (5)
  - AUTOIMMUNE DISORDER [None]
  - HYPOTHYROIDISM [None]
  - LEUKOPENIA [None]
  - NEOPLASM MALIGNANT [None]
  - THROMBOCYTOPENIA [None]
